FAERS Safety Report 5694958-0 (Version None)
Quarter: 2008Q2

REPORT INFORMATION
  Report Type: 
  Country: None (occurrence: None)
  Receive Date: 20080404
  Receipt Date: 20080325
  Transmission Date: 20081010
  Serious: Yes (Hospitalization, Other)
  Sender: FDA-Public Use
  Company Number: IT-PFIZER INC-2008026991

PATIENT
  Sex: Male
  Weight: 87 kg

DRUGS (3)
  1. MARAVIROC [Suspect]
     Indication: HIV INFECTION
     Route: 048
  2. ETRAVIRINE [Concomitant]
     Route: 048
  3. RALTEGRAVIR [Concomitant]
     Route: 048

REACTIONS (1)
  - ANAL CANCER STAGE III [None]
